FAERS Safety Report 23045600 (Version 1)
Quarter: 2023Q4

REPORT INFORMATION
  Report Type: Report from Study
  Country: PR (occurrence: PR)
  Receive Date: 20231009
  Receipt Date: 20231009
  Transmission Date: 20240110
  Serious: Yes (Hospitalization)
  Sender: FDA-Public Use
  Company Number: PR-ABBVIE-5438804

PATIENT
  Sex: Female
  Weight: 61 kg

DRUGS (5)
  1. HUMIRA [Suspect]
     Active Substance: ADALIMUMAB
     Indication: Rheumatoid arthritis
     Dosage: 40MG/0.4ML?FORM STRENGTH 40 MILLIGRAM
     Route: 058
  2. HUMIRA [Suspect]
     Active Substance: ADALIMUMAB
  3. TOZINAMERAN [Concomitant]
     Active Substance: TOZINAMERAN
     Indication: COVID-19
     Dosage: 1ST DOSE
     Route: 030
     Dates: start: 20210306, end: 20210306
  4. TOZINAMERAN [Concomitant]
     Active Substance: TOZINAMERAN
     Indication: COVID-19
     Dosage: 2ND DOSE
     Route: 030
     Dates: start: 20210406, end: 20210406
  5. TOZINAMERAN [Concomitant]
     Active Substance: TOZINAMERAN
     Indication: COVID-19
     Dosage: 3RD DOSE
     Route: 030
     Dates: start: 20211013, end: 20211013

REACTIONS (4)
  - Panic attack [Recovering/Resolving]
  - Intervertebral disc protrusion [Not Recovered/Not Resolved]
  - Depression [Not Recovered/Not Resolved]
  - Gait disturbance [Not Recovered/Not Resolved]

NARRATIVE: CASE EVENT DATE: 20230101
